FAERS Safety Report 13515576 (Version 1)
Quarter: 2017Q2

REPORT INFORMATION
  Report Type: Spontaneous
  Country: ES (occurrence: ES)
  Receive Date: 20170504
  Receipt Date: 20170504
  Transmission Date: 20170830
  Serious: Yes (Other)
  Sender: FDA-Public Use
  Company Number: ES-BAYER-2017-079856

PATIENT
  Age: 45 Year
  Sex: Male

DRUGS (1)
  1. INTERFERON BETA - 1B [Suspect]
     Active Substance: INTERFERON BETA-1B
     Indication: MULTIPLE SCLEROSIS
     Dosage: 1 DF, QOD
     Dates: start: 1998

REACTIONS (4)
  - Hypertension [None]
  - Thrombotic microangiopathy [None]
  - Multiple sclerosis [Unknown]
  - Proteinuria [None]

NARRATIVE: CASE EVENT DATE: 2001
